FAERS Safety Report 17046122 (Version 1)
Quarter: 2019Q4

REPORT INFORMATION
  Report Type: Spontaneous
  Country: CA (occurrence: CA)
  Receive Date: 20191119
  Receipt Date: 20191119
  Transmission Date: 20200122
  Serious: Yes (Other)
  Sender: FDA-Public Use
  Company Number: CA-AUROBINDO-AUR-APL-2019-072856

PATIENT
  Age: 45 Year
  Sex: Male
  Weight: 66 kg

DRUGS (3)
  1. REMICADE [Suspect]
     Active Substance: INFLIXIMAB
     Indication: ANKYLOSING SPONDYLITIS
     Dosage: 400.0 MILLIGRAM, 1 EVERY 4 WEEKS
     Route: 042
  2. REMICADE [Suspect]
     Active Substance: INFLIXIMAB
     Indication: ANKYLOSING SPONDYLITIS
     Dosage: 400.0 MILLIGRAM, 1 EVERY 4 WEEKS
     Route: 042
  3. AMOXICILLIN. [Suspect]
     Active Substance: AMOXICILLIN
     Indication: EAR INFECTION
     Dosage: UNK
     Route: 065

REACTIONS (8)
  - Herpes zoster [Not Recovered/Not Resolved]
  - Arthritis [Not Recovered/Not Resolved]
  - Lyme disease [Not Recovered/Not Resolved]
  - Weight decreased [Not Recovered/Not Resolved]
  - Abdominal discomfort [Not Recovered/Not Resolved]
  - Diverticulum [Not Recovered/Not Resolved]
  - Influenza [Not Recovered/Not Resolved]
  - Ear infection [Not Recovered/Not Resolved]
